FAERS Safety Report 4957205-0 (Version None)
Quarter: 2006Q1

REPORT INFORMATION
  Report Type: 
  Country: None (occurrence: None)
  Receive Date: 20060329
  Receipt Date: 20060202
  Transmission Date: 20060701
  Serious: Yes (Hospitalization, Disabling, Other)
  Sender: FDA-Public Use
  Company Number: US-MERCK-0602USA01626

PATIENT
  Age: 69 Year
  Sex: Female
  Weight: 116 kg

DRUGS (2)
  1. VIOXX [Suspect]
     Indication: ARTHRITIS
     Route: 048
     Dates: start: 20031224, end: 20041026
  2. CELEBREX [Concomitant]
     Route: 065

REACTIONS (10)
  - ANXIETY [None]
  - BLINDNESS [None]
  - CEREBROVASCULAR ACCIDENT [None]
  - DIFFICULTY IN WALKING [None]
  - DISCOMFORT [None]
  - EMOTIONAL DISORDER [None]
  - HALLUCINATION [None]
  - INJURY [None]
  - MYOCARDIAL INFARCTION [None]
  - PAIN [None]
